FAERS Safety Report 5391681-7 (Version None)
Quarter: 2007Q3

REPORT INFORMATION
  Report Type: 
  Country: None (occurrence: None)
  Receive Date: 20070717
  Receipt Date: 20070704
  Transmission Date: 20080115
  Serious: Yes (Other)
  Sender: FDA-Public Use
  Company Number: S07-UKI-03012-01

PATIENT
  Age: 74 Year
  Sex: Female

DRUGS (3)
  1. CITALOPRAM HYDROBROMIDE [Suspect]
     Indication: DEPRESSION
     Dosage: 10 MG QD PO
     Route: 048
     Dates: start: 20070601, end: 20070604
  2. AMITRIPTYLINE HCL [Concomitant]
  3. DEPIXOL (FLUPENTIXOL DECANOATE) [Concomitant]

REACTIONS (3)
  - DYSPHAGIA [None]
  - MUSCULAR WEAKNESS [None]
  - TREMOR [None]
